FAERS Safety Report 21144468 (Version 3)
Quarter: 2022Q3

REPORT INFORMATION
  Report Type: Spontaneous
  Country: US (occurrence: US)
  Receive Date: 20220728
  Receipt Date: 20220913
  Transmission Date: 20221026
  Serious: Yes (Other)
  Sender: FDA-Public Use
  Company Number: US-PFIZER INC-202201014071

PATIENT
  Age: 75 Year
  Sex: Female
  Weight: 48.08 kg

DRUGS (1)
  1. LINEZOLID [Suspect]
     Active Substance: LINEZOLID
     Indication: Vaginal infection
     Dosage: 600 MG, 2X/DAY
     Dates: start: 20220725, end: 20220725

REACTIONS (14)
  - Illness [Not Recovered/Not Resolved]
  - Weight decreased [Not Recovered/Not Resolved]
  - Eating disorder [Recovered/Resolved]
  - Headache [Not Recovered/Not Resolved]
  - Tremor [Recovered/Resolved]
  - Palpitations [Not Recovered/Not Resolved]
  - Constipation [Not Recovered/Not Resolved]
  - Nausea [Not Recovered/Not Resolved]
  - Visual impairment [Unknown]
  - Tinnitus [Unknown]
  - Malaise [Unknown]
  - Hypoacusis [Unknown]
  - Hair colour changes [Unknown]
  - Tooth discolouration [Unknown]

NARRATIVE: CASE EVENT DATE: 20220101
